FAERS Safety Report 15524456 (Version 1)
Quarter: 2018Q4

REPORT INFORMATION
  Report Type: Report from Study
  Country: US (occurrence: US)
  Receive Date: 20181019
  Receipt Date: 20181019
  Transmission Date: 20190205
  Serious: Yes (Hospitalization, Other)
  Sender: FDA-Public Use
  Company Number: PHEH2018US043633

PATIENT
  Sex: Male

DRUGS (1)
  1. ENTRESTO [Suspect]
     Active Substance: SACUBITRIL\VALSARTAN
     Indication: PRODUCT USED FOR UNKNOWN INDICATION
     Route: 048

REACTIONS (8)
  - Infection [Unknown]
  - Wound [Unknown]
  - Hypotension [Unknown]
  - Sepsis [Unknown]
  - Peripheral swelling [Unknown]
  - Autonomic nervous system imbalance [Unknown]
  - Diabetes mellitus [Unknown]
  - Motion sickness [Recovered/Resolved]
